FAERS Safety Report 25837101 (Version 1)
Quarter: 2025Q3

REPORT INFORMATION
  Report Type: Spontaneous
  Country: IN (occurrence: IN)
  Receive Date: 20250923
  Receipt Date: 20250923
  Transmission Date: 20251021
  Serious: Yes (Other)
  Sender: TERSERA THERAPEUTICS
  Company Number: EU-AstraZeneca-CH-00946665A

PATIENT

DRUGS (2)
  1. GOSERELIN [Suspect]
     Active Substance: GOSERELIN
     Indication: Prostate cancer metastatic
     Route: 065
     Dates: start: 20220611
  2. ZOLADEX [Suspect]
     Active Substance: GOSERELIN ACETATE
     Indication: Prostate cancer metastatic
     Route: 065

REACTIONS (7)
  - Tertiary adrenal insufficiency [Unknown]
  - Hypothyroidism [Unknown]
  - Sleep apnoea syndrome [Unknown]
  - Anaemia [Not Recovered/Not Resolved]
  - Hypertension [Unknown]
  - Hot flush [Unknown]
  - Hypercholesterolaemia [Unknown]

NARRATIVE: CASE EVENT DATE: 20160101
